FAERS Safety Report 5187718-0 (Version None)
Quarter: 2006Q4

REPORT INFORMATION
  Report Type: 
  Country: None (occurrence: None)
  Receive Date: 20061214
  Receipt Date: 20061207
  Transmission Date: 20070319
  Serious: Yes (Hospitalization)
  Sender: FDA-Public Use
  Company Number: 232586

PATIENT
  Age: 41 Year
  Sex: Male

DRUGS (3)
  1. AVASTIN [Suspect]
     Indication: NON-SMALL CELL LUNG CANCER
     Dosage: 10 MG/KG QOW INTRAVENOUS
     Route: 042
     Dates: start: 20060911, end: 20061030
  2. TAXOL [Suspect]
     Indication: NON-SMALL CELL LUNG CANCER
     Dosage: 45 MG/M2, 1/WEEK, INTRAVENOUS
     Route: 042
     Dates: start: 20060911, end: 20061030
  3. CARBOPLATIN [Suspect]
     Indication: NON-SMALL CELL LUNG CANCER
     Dosage: 2 AUC INTRAVENOUS
     Route: 042
     Dates: start: 20060911, end: 20061030

REACTIONS (8)
  - ANXIETY [None]
  - HYPOVOLAEMIA [None]
  - MALIGNANT NEOPLASM PROGRESSION [None]
  - NAUSEA [None]
  - PULMONARY HYPERTENSION [None]
  - RADIATION OESOPHAGITIS [None]
  - TACHYCARDIA [None]
  - WEIGHT DECREASED [None]
